FAERS Safety Report 8536221-6 (Version None)
Quarter: 2012Q2

REPORT INFORMATION
  Report Type: 
  Country: None (occurrence: None)
  Receive Date: 20120412
  Receipt Date: 20100329
  Transmission Date: 20120825
  Serious: Yes (Hospitalization, Other)
  Sender: FDA-Public Use
  Company Number: PHEH2006US06792

PATIENT
  Age: 74 Year
  Sex: Female
  Weight: 65.3 kg

DRUGS (68)
  1. ATARAX [Concomitant]
  2. BACTRIM [Concomitant]
  3. PROCHLORPERAZINE MALEATE [Concomitant]
  4. ACEON [Concomitant]
  5. PAMELOR [Concomitant]
  6. ROBAXIN [Concomitant]
  7. ZOLOFT [Concomitant]
  8. PHENERGAN ^AVENTIS PHARMA^ (PROMETHAZINE HYDROCHLORIDE) [Concomitant]
  9. BETAMETHASONE VALERATE [Concomitant]
  10. LOVENOX [Concomitant]
  11. LORAZEPAM [Concomitant]
  12. CYCLOBENZAPRINE [Concomitant]
  13. HYDROXYZINE [Concomitant]
  14. METHADONE HYDROCHLORIDE [Concomitant]
  15. MEDROL [Concomitant]
  16. RELAFEN [Concomitant]
  17. SOMA [Concomitant]
  18. GLUCOSAMINE W/CHONDROITIN (CHONDROITIN SULFATE, GLUCOSAMINE) [Concomitant]
  19. DARVOCET-N (DEXTROPROPOXYPHENE NAPSILATE, PARACETAMOL) [Concomitant]
  20. CHLORHEXIDINE GLUCONATE [Concomitant]
  21. SPORANOX [Concomitant]
  22. GEMCITABINE [Concomitant]
  23. CODEINE SULFATE [Concomitant]
  24. AREDIA [Suspect]
     Indication: METASTASES TO BONE
     Dosage: 90MG QMON IN 500CC OVER 1.5 TO 2 HOURS
     Dates: start: 20001003, end: 20020219
  25. FOSAMAX [Concomitant]
  26. AROMASIN [Concomitant]
  27. VESICARE [Concomitant]
  28. METOCLOPRAMID (METOCLOPRAMIDE HYDROCHLORIDE) [Concomitant]
  29. MOBIC [Concomitant]
  30. PREDNISONE TAB [Concomitant]
  31. FLEXERIL [Concomitant]
  32. KLONOPIN [Concomitant]
  33. TAMOXIFEN CITRATE [Concomitant]
  34. CELEBREX [Concomitant]
  35. PROMETHAZINE HYDROCHLORIDE [Concomitant]
  36. VITAMIN D [Concomitant]
  37. DEMEROL [Concomitant]
  38. NAPROSYN [Concomitant]
  39. NEURONTIN [Concomitant]
  40. ATIVAN [Concomitant]
  41. REGLAN [Concomitant]
  42. ZYRTEC [Concomitant]
  43. CALCITONIN (CALCITONIN) [Concomitant]
  44. TORADOL [Concomitant]
  45. FAMVIR /NET/ (PENCICLOVIR) [Concomitant]
  46. ELIDEL [Concomitant]
  47. PENCILLIN VK (PHENOXYMETHYLPENICILLIN POTASSIUM) [Concomitant]
  48. LIDOCAINE VISCOUS (LIDOCAINE HYDROCHLORIDE) [Concomitant]
  49. PAXIL [Concomitant]
  50. OXYCODONE HCL [Concomitant]
  51. ELAVIL [Concomitant]
  52. LODINE [Concomitant]
  53. SKELAXIN [Concomitant]
  54. ARIMIDEX [Concomitant]
  55. CALCIUM CARBONATE [Concomitant]
  56. PERCOCET [Concomitant]
  57. DESYREL [Concomitant]
  58. TEGRETOL [Concomitant]
  59. ULTRAM [Concomitant]
  60. ZOMETA [Suspect]
     Indication: METASTASES TO BONE
     Dosage: 4MG QMONTH, INFUSION
     Dates: start: 20020319, end: 20031201
  61. VIOXX [Concomitant]
  62. NEXIUM [Concomitant]
  63. CYPROHEPTADINE HCL [Concomitant]
  64. HYDROCODONE BITARTRATE + ACETAMINOPHEN [Concomitant]
  65. NOLVADEX [Concomitant]
  66. ALPRAZOLAM [Concomitant]
  67. AVELOX [Concomitant]
  68. AMBIEN [Concomitant]

REACTIONS (45)
  - ASPIRATION [None]
  - OSTEOMYELITIS [None]
  - IMPAIRED HEALING [None]
  - PROCEDURAL PAIN [None]
  - DYSGEUSIA [None]
  - FISTULA REPAIR [None]
  - SPINAL OSTEOARTHRITIS [None]
  - WEIGHT DECREASED [None]
  - RASH [None]
  - URTICARIA [None]
  - MYOFASCIAL PAIN SYNDROME [None]
  - DYSPHAGIA [None]
  - ANXIETY [None]
  - TOOTH FRACTURE [None]
  - DENTAL CARIES [None]
  - PAPILLOMA [None]
  - ACTINOMYCOSIS [None]
  - ORAL CAVITY FISTULA [None]
  - TOOTH INFECTION [None]
  - DERMATITIS [None]
  - DEFORMITY [None]
  - ANHEDONIA [None]
  - HYPOAESTHESIA [None]
  - FISTULA [None]
  - PLASTIC SURGERY TO THE FACE [None]
  - FACE OEDEMA [None]
  - ORAL DISCOMFORT [None]
  - HYPERPLASIA [None]
  - INFLAMMATION [None]
  - JAW OPERATION [None]
  - PAIN IN JAW [None]
  - PAIN [None]
  - TOOTH EXTRACTION [None]
  - GINGIVAL SWELLING [None]
  - ORAL SURGERY [None]
  - DENTAL OPERATION [None]
  - OSTEONECROSIS OF JAW [None]
  - BONE PAIN [None]
  - PAIN IN EXTREMITY [None]
  - OSTEOARTHRITIS [None]
  - EMOTIONAL DISTRESS [None]
  - TOOTHACHE [None]
  - TOOTH LOSS [None]
  - HYPERBARIC OXYGEN THERAPY [None]
  - BACK PAIN [None]
